FAERS Safety Report 5358369-X (Version None)
Quarter: 2007Q2

REPORT INFORMATION
  Report Type: 
  Country: None (occurrence: None)
  Receive Date: 20070613
  Receipt Date: 20070613
  Transmission Date: 20071010
  Serious: Yes (Hospitalization)
  Sender: FDA-Public Use
  Company Number: None

PATIENT
  Sex: Female
  Weight: 60.78 kg

DRUGS (7)
  1. CISPLATIN [Suspect]
     Dosage: 70 MG
  2. FLAGYL [Concomitant]
  3. POTASSIUM CHLORIDE [Concomitant]
  4. PREDNISONE TAB [Concomitant]
  5. PROTONIX [Concomitant]
  6. SULFASOLAZINE [Concomitant]
  7. VANTIN [Concomitant]

REACTIONS (4)
  - DEHYDRATION [None]
  - DIARRHOEA [None]
  - NAUSEA [None]
  - VOMITING [None]
